FAERS Safety Report 16378243 (Version 1)
Quarter: 2019Q2

REPORT INFORMATION
  Report Type: Report from Study
  Country: None (occurrence: NL)
  Receive Date: 20190531
  Receipt Date: 20190531
  Transmission Date: 20190711
  Serious: Yes (Other)
  Sender: FDA-Public Use
  Company Number: NL-ABBVIE-19S-114-2738366-00

PATIENT
  Sex: Female

DRUGS (2)
  1. DUODOPA [Suspect]
     Active Substance: CARBIDOPA\LEVODOPA
     Indication: PARKINSON^S DISEASE
     Dosage: CD: 4.8
     Route: 050
     Dates: start: 20181029
  2. DUODOPA [Suspect]
     Active Substance: CARBIDOPA\LEVODOPA
     Dosage: MD: 8.5, CD: 5.3, ED: 2.8
     Route: 050

REACTIONS (11)
  - Device dislocation [Unknown]
  - Stress [Not Recovered/Not Resolved]
  - Product administration error [Not Recovered/Not Resolved]
  - General physical health deterioration [Not Recovered/Not Resolved]
  - Parkinson^s disease [Not Recovered/Not Resolved]
  - Feeling abnormal [Not Recovered/Not Resolved]
  - Memory impairment [Not Recovered/Not Resolved]
  - Intestinal operation [Unknown]
  - Muscle rigidity [Not Recovered/Not Resolved]
  - Headache [Not Recovered/Not Resolved]
  - Abnormal faeces [Not Recovered/Not Resolved]
